FAERS Safety Report 6128455-5 (Version None)
Quarter: 2009Q1

REPORT INFORMATION
  Report Type: 
  Country: None (occurrence: None)
  Receive Date: 20090323
  Receipt Date: 20090317
  Transmission Date: 20090719
  Serious: Yes (Hospitalization, Other)
  Sender: FDA-Public Use
  Company Number: NL-AVENTIS-200912634GDDC

PATIENT
  Age: 43 Year
  Sex: Female

DRUGS (4)
  1. ARAVA [Suspect]
     Indication: RHEUMATOID ARTHRITIS
     Route: 048
     Dates: start: 20080912, end: 20081127
  2. ARAVA [Suspect]
     Route: 048
     Dates: start: 20081128, end: 20090227
  3. METOPROLOL TARTRATE [Concomitant]
     Dates: end: 20090301
  4. HYDROCHLOROTHIAZIDE [Concomitant]
     Dates: end: 20090301

REACTIONS (4)
  - COLITIS [None]
  - LARGE INTESTINE PERFORATION [None]
  - LIVER FUNCTION TEST ABNORMAL [None]
  - THROMBOCYTOPENIA [None]
